FAERS Safety Report 7250013-X (Version None)
Quarter: 2011Q1

REPORT INFORMATION
  Report Type: 
  Country: None (occurrence: None)
  Receive Date: 20110118
  Receipt Date: 20110104
  Transmission Date: 20110831
  Serious: Yes (Death)
  Sender: FDA-Public Use
  Company Number: WAES 1101DEU00026

PATIENT
  Age: 61 Year
  Sex: Male

DRUGS (2)
  1. CANCIDAS [Suspect]
     Indication: ASPERGILLOSIS
     Dosage: 50 MG/DAILY, IV, 70 MG/DAILY, IV
     Route: 042
  2. SUSP POSACONAZOLE [Suspect]
     Indication: ASPERGILLOSIS
     Dosage: 200 MG/QID, PO
     Route: 048

REACTIONS (1)
  - DRUG INEFFECTIVE [None]
